FAERS Safety Report 5773926-4 (Version None)
Quarter: 2008Q2

REPORT INFORMATION
  Report Type: 
  Country: None (occurrence: None)
  Receive Date: 20080616
  Receipt Date: 20080612
  Transmission Date: 20081010
  Serious: Yes (Hospitalization)
  Sender: FDA-Public Use
  Company Number: B0524686A

PATIENT
  Age: 87 Year
  Sex: Male

DRUGS (9)
  1. PAROXETINE HCL [Suspect]
     Dates: start: 20080529, end: 20080602
  2. SERETIDE [Concomitant]
     Route: 055
  3. DIAZEPAM [Concomitant]
  4. LANSOPRAZOLE [Concomitant]
  5. SIMVASTATIN [Concomitant]
  6. ACETAMINOPHEN [Concomitant]
  7. ALBUTEROL [Concomitant]
  8. BENDROFLUMETHIAZIDE [Concomitant]
  9. BECLOMETHASONE DIPROPIONATE [Concomitant]

REACTIONS (5)
  - ANOREXIA [None]
  - COLD SWEAT [None]
  - DIARRHOEA [None]
  - FEELING HOT [None]
  - PALPITATIONS [None]
